FAERS Safety Report 12813120 (Version 1)
Quarter: 2016Q4

REPORT INFORMATION
  Report Type: Spontaneous
  Country: US (occurrence: US)
  Receive Date: 20161005
  Receipt Date: 20161005
  Transmission Date: 20170207
  Serious: Yes (Hospitalization)
  Sender: FDA-Public Use
  Company Number: US-BEH-2016073839

PATIENT
  Age: 73 Year
  Sex: Male

DRUGS (1)
  1. STIMATE [Suspect]
     Active Substance: DESMOPRESSIN ACETATE
     Indication: VON WILLEBRAND^S DISEASE
     Dosage: 1.5, PRN
     Route: 045
     Dates: start: 20160616

REACTIONS (4)
  - Gastrointestinal haemorrhage [Unknown]
  - Contusion [Unknown]
  - Epistaxis [Unknown]
  - Administration site haemorrhage [Unknown]

NARRATIVE: CASE EVENT DATE: 20160920
